FAERS Safety Report 25609035 (Version 1)
Quarter: 2025Q3

REPORT INFORMATION
  Report Type: Spontaneous
  Country: EU (occurrence: EU)
  Receive Date: 20250726
  Receipt Date: 20250726
  Transmission Date: 20251020
  Serious: Yes (Hospitalization)
  Sender: AMGEN
  Company Number: EU-AMGEN-ESPSP2025147193

PATIENT
  Age: 82 Year
  Sex: Male

DRUGS (3)
  1. IMDELLTRA [Suspect]
     Active Substance: TARLATAMAB-DLLE
     Indication: Small cell lung cancer limited stage
     Route: 065
     Dates: start: 20250708
  2. CARBOPLATIN [Concomitant]
     Active Substance: CARBOPLATIN
     Dates: start: 20240419, end: 20250204
  3. ETOPOSIDE [Concomitant]
     Active Substance: ETOPOSIDE
     Dates: start: 20241119, end: 20250206

REACTIONS (4)
  - Fatigue [Not Recovered/Not Resolved]
  - Asthenia [Unknown]
  - General physical health deterioration [Unknown]
  - Off label use [Unknown]

NARRATIVE: CASE EVENT DATE: 20250708
